FAERS Safety Report 19685878 (Version 3)
Quarter: 2021Q4

REPORT INFORMATION
  Report Type: Report from Study
  Country: AU (occurrence: AU)
  Receive Date: 20210811
  Receipt Date: 20211012
  Transmission Date: 20220303
  Serious: Yes (Hospitalization)
  Sender: FDA-Public Use
  Company Number: AU-MERCK HEALTHCARE KGAA-9255960

PATIENT
  Age: 65 Year
  Sex: Male
  Weight: 79 kg

DRUGS (8)
  1. CARBOPLATIN [Suspect]
     Active Substance: CARBOPLATIN
     Indication: Oesophageal carcinoma
     Dosage: 318 MG
     Dates: start: 20210618
  2. CARBOPLATIN [Suspect]
     Active Substance: CARBOPLATIN
     Dosage: 318 MG
     Dates: start: 20210719, end: 20210719
  3. PACLITAXEL [Suspect]
     Active Substance: PACLITAXEL
     Indication: Oesophageal carcinoma
     Dosage: 102 MG
     Dates: start: 20210618
  4. PACLITAXEL [Suspect]
     Active Substance: PACLITAXEL
     Dosage: 102 MG
     Dates: start: 20210719, end: 20210719
  5. AVELUMAB [Suspect]
     Active Substance: AVELUMAB
     Indication: Oesophageal carcinoma
     Dosage: 820 MG
     Route: 042
     Dates: start: 20210618
  6. AVELUMAB [Suspect]
     Active Substance: AVELUMAB
     Dosage: 820 MG
     Route: 042
     Dates: start: 20210719
  7. FENTANYL [Concomitant]
     Active Substance: FENTANYL
     Indication: Pain
     Dosage: UNK , CYCLIC (PATCH 37 UG/HR ONCE EVERY 3DAYS)
     Route: 061
     Dates: start: 20210715
  8. ESOMEPRAZOLE. [Concomitant]
     Active Substance: ESOMEPRAZOLE MAGNESIUM
     Indication: Gastrooesophageal reflux disease
     Dosage: 40 MG, 1X/DAY
     Route: 048
     Dates: start: 202105

REACTIONS (1)
  - Hypotension [Not Recovered/Not Resolved]

NARRATIVE: CASE EVENT DATE: 20210730
